FAERS Safety Report 17754723 (Version 2)
Quarter: 2020Q2

REPORT INFORMATION
  Report Type: Report from Study
  Country: MY (occurrence: MY)
  Receive Date: 20200507
  Receipt Date: 20200528
  Transmission Date: 20200714
  Serious: Yes (Hospitalization, Other)
  Sender: FDA-Public Use
  Company Number: MY-ROCHE-2558847

PATIENT
  Age: 70 Year
  Sex: Female

DRUGS (1)
  1. AVASTIN [Suspect]
     Active Substance: BEVACIZUMAB
     Indication: OVARIAN CANCER
     Route: 042

REACTIONS (6)
  - Aneurysm [Unknown]
  - Genital haemorrhage [Unknown]
  - Aortoenteric fistula [Unknown]
  - Haemorrhoidal haemorrhage [Unknown]
  - Lower gastrointestinal haemorrhage [Unknown]
  - Haemorrhoids [Unknown]
